FAERS Safety Report 9374019 (Version 1)
Quarter: 2013Q2

REPORT INFORMATION
  Report Type: Spontaneous
  Country: NO (occurrence: NO)
  Receive Date: 20130628
  Receipt Date: 20130628
  Transmission Date: 20140414
  Serious: Yes (Other)
  Sender: FDA-Public Use
  Company Number: NO-RANBAXY-2013R1-70427

PATIENT
  Sex: Male

DRUGS (3)
  1. SIMVASTATIN [Suspect]
     Indication: PROPHYLAXIS
     Route: 048
     Dates: start: 2010, end: 2010
  2. LIPITOR [Suspect]
     Indication: PROPHYLAXIS
     Route: 048
     Dates: start: 2010, end: 2010
  3. METFORMIN [Concomitant]
     Indication: TYPE 2 DIABETES MELLITUS
     Dosage: 850 MG, BID
     Route: 048

REACTIONS (2)
  - Myalgia [Recovered/Resolved]
  - Pulmonary fibrosis [Recovering/Resolving]
